FAERS Safety Report 9313400 (Version 2)
Quarter: 2013Q3

REPORT INFORMATION
  Report Type: Report from Study
  Country: BR (occurrence: BR)
  Receive Date: 20130528
  Receipt Date: 20130816
  Transmission Date: 20140515
  Serious: Yes (Other)
  Sender: FDA-Public Use
  Company Number: BR-ELI_LILLY_AND_COMPANY-BR201305005283

PATIENT
  Age: 79 Year
  Sex: Female
  Weight: 60 kg

DRUGS (9)
  1. TERIPARATIDE [Suspect]
     Dosage: 20 UG, QD
     Route: 058
     Dates: start: 201209
  2. RISPERIDONA [Concomitant]
     Dosage: UNK, UNKNOWN
     Route: 065
  3. PREDNISONA [Concomitant]
     Dosage: 7.5 MG, UNKNOWN
     Route: 065
  4. LOSARTAN [Concomitant]
     Indication: BLOOD PRESSURE
     Dosage: 100 MG, UNKNOWN
     Route: 065
  5. SOMALGIN [Concomitant]
     Dosage: 100 MG, UNKNOWN
     Route: 065
  6. GLIFAGE [Concomitant]
     Dosage: 500 MG, UNKNOWN
     Route: 065
  7. PRISTIQ [Concomitant]
     Indication: ANTIDEPRESSANT THERAPY
     Dosage: 100 MG, UNKNOWN
     Route: 065
  8. ALPRAZOLAN [Concomitant]
     Dosage: 5 MG, EACH MORNING
     Route: 065
  9. ALPRAZOLAN [Concomitant]
     Dosage: 10 MG, EACH EVENING
     Route: 065

REACTIONS (7)
  - Dementia [Not Recovered/Not Resolved]
  - Consciousness fluctuating [Not Recovered/Not Resolved]
  - Infection [Not Recovered/Not Resolved]
  - Feeding disorder [Not Recovered/Not Resolved]
  - Gait disturbance [Not Recovered/Not Resolved]
  - Agitation [Not Recovered/Not Resolved]
  - Apathy [Not Recovered/Not Resolved]
